FAERS Safety Report 17542525 (Version 2)
Quarter: 2020Q1

REPORT INFORMATION
  Report Type: Spontaneous
  Country: US (occurrence: US)
  Receive Date: 20200314
  Receipt Date: 20200330
  Transmission Date: 20200409
  Serious: No
  Sender: FDA-Public Use
  Company Number: US-AMGEN INC.-USASP2020040903

PATIENT
  Age: 47 Year
  Sex: Male
  Weight: 64.4 kg

DRUGS (2)
  1. MIGRANOL [ATROPINE SULFATE;CAFFEINE;NICOTINIC ACID;PAPAVERINE HYDROCHL [Concomitant]
     Indication: MIGRAINE
     Dosage: UNK UNK, AS NECESSARY
  2. AIMOVIG [Suspect]
     Active Substance: ERENUMAB-AOOE
     Indication: MIGRAINE PROPHYLAXIS
     Dosage: 70 MILLIGRAM, QMO
     Route: 058
     Dates: start: 20180820, end: 201902

REACTIONS (1)
  - Constipation [Recovering/Resolving]

NARRATIVE: CASE EVENT DATE: 20180822
